FAERS Safety Report 18315466 (Version 1)
Quarter: 2020Q3

REPORT INFORMATION
  Report Type: Spontaneous
  Country: CA (occurrence: CA)
  Receive Date: 20200926
  Receipt Date: 20200926
  Transmission Date: 20201103
  Serious: Yes (Hospitalization)
  Sender: FDA-Public Use
  Company Number: CA-ACCORD-202649

PATIENT
  Age: 90 Year
  Sex: Female

DRUGS (1)
  1. METHOTREXATE. [Suspect]
     Active Substance: METHOTREXATE
     Indication: PRODUCT USED FOR UNKNOWN INDICATION
     Dosage: 1 EVERY 1 WEEKS
     Route: 065

REACTIONS (7)
  - Loss of personal independence in daily activities [Unknown]
  - Hip fracture [Unknown]
  - Fall [Unknown]
  - Head injury [Unknown]
  - Hypoacusis [Unknown]
  - Contusion [Unknown]
  - Pain [Unknown]
